FAERS Safety Report 24748593 (Version 1)
Quarter: 2024Q4

REPORT INFORMATION
  Report Type: Spontaneous
  Country: US (occurrence: None)
  Receive Date: 20241217
  Receipt Date: 20241217
  Transmission Date: 20250115
  Serious: No
  Sender: Public
  Company Number: None

PATIENT
  Age: 46 Year
  Sex: Female

DRUGS (1)
  1. YUFLYMA [Suspect]
     Active Substance: ADALIMUMAB-AATY
     Dosage: OTHER FREQUENCY : EVERY 14 DAYS;?
     Route: 058

REACTIONS (5)
  - Product packaging quantity issue [None]
  - Product supply issue [None]
  - Transcription medication error [None]
  - Intercepted product dispensing error [None]
  - Device computer issue [None]

NARRATIVE: CASE EVENT DATE: 20240906
